FAERS Safety Report 7404954-0 (Version None)
Quarter: 2011Q2

REPORT INFORMATION
  Report Type: 
  Country: None (occurrence: None)
  Receive Date: 20110411
  Receipt Date: 20110331
  Transmission Date: 20111010
  Serious: Yes (Hospitalization, Other)
  Sender: FDA-Public Use
  Company Number: FR-ELI_LILLY_AND_COMPANY-FR201103002458

PATIENT
  Age: 74 Year
  Sex: Female
  Weight: 63 kg

DRUGS (3)
  1. FORTEO [Suspect]
     Indication: OSTEOPOROSIS
     Dosage: 20 UG, DAILY (1/D)
     Route: 058
     Dates: start: 20091120, end: 20101229
  2. PREVISCAN [Concomitant]
     Indication: EMBOLISM ARTERIAL
     Dosage: 1 DF, QD
     Route: 048
     Dates: start: 20060101
  3. ACETAMINOPHEN [Concomitant]
     Indication: BACK PAIN
     Dosage: 1 G, BID
     Route: 048
     Dates: start: 20091101, end: 20101001

REACTIONS (1)
  - LUNG NEOPLASM [None]
